FAERS Safety Report 23673350 (Version 1)
Quarter: 2024Q1

REPORT INFORMATION
  Report Type: Spontaneous
  Country: KR (occurrence: KR)
  Receive Date: 20240326
  Receipt Date: 20240326
  Transmission Date: 20240410
  Serious: Yes (Hospitalization)
  Sender: FDA-Public Use
  Company Number: KR-BoehringerIngelheim-2024-BI-017481

PATIENT
  Age: 74 Year
  Sex: Female
  Weight: 50.3 kg

DRUGS (1)
  1. EMPAGLIFLOZIN\METFORMIN HYDROCHLORIDE [Suspect]
     Active Substance: EMPAGLIFLOZIN\METFORMIN HYDROCHLORIDE
     Indication: Glycosuria
     Dosage: FORM STRENGTH 5/500MG?UNIT DOSE : 1 DOSAGE FORM
     Dates: start: 20230310, end: 20230402

REACTIONS (2)
  - Blood creatinine increased [Recovering/Resolving]
  - Azotaemia [Recovering/Resolving]

NARRATIVE: CASE EVENT DATE: 20230402
